FAERS Safety Report 8967820 (Version 2)
Quarter: 2014Q2

REPORT INFORMATION
  Report Type: Spontaneous
  Country: US (occurrence: US)
  Receive Date: 20121217
  Receipt Date: 20140411
  Transmission Date: 20141212
  Serious: Yes (Life-Threatening, Hospitalization)
  Sender: FDA-Public Use
  Company Number: US-BAYER-2012-130439

PATIENT
  Age: 35 Year
  Sex: Female
  Weight: 74.38 kg

DRUGS (6)
  1. SAFYRAL [Suspect]
  2. YAZ [Suspect]
  3. YASMIN [Suspect]
  4. OCELLA [Suspect]
  5. GIANVI [Suspect]
  6. BEYAZ [Suspect]

REACTIONS (9)
  - Subclavian artery embolism [None]
  - Deep vein thrombosis [None]
  - Injury [None]
  - Pain [None]
  - General physical health deterioration [None]
  - Emotional distress [None]
  - Anxiety [None]
  - Anhedonia [None]
  - Pain [None]
